FAERS Safety Report 10187288 (Version 1)
Quarter: 2014Q2

REPORT INFORMATION
  Report Type: Spontaneous
  Country: US (occurrence: None)
  Receive Date: 20140520
  Receipt Date: 20140520
  Transmission Date: 20141212
  Serious: Yes (Hospitalization)
  Sender: FDA-Public Use
  Company Number: 2014-US-006109

PATIENT
  Age: 49 Year
  Sex: Male

DRUGS (6)
  1. CLOZAPINE [Suspect]
     Indication: SCHIZOPHRENIA
     Route: 048
  2. ARIPIPRAZOLE (ARIPIPRAZOLE) [Concomitant]
  3. DIVALPROEX (VALPROATE SEMISODIM) [Concomitant]
  4. ESCITALOPRAM (ESCITALOPRAM) [Concomitant]
  5. VANCOMYCIN HCL (VANCOMYCIN HYDROCHLORIDE) [Concomitant]
  6. CEFTRIAXONE SODIUM (CEFTRIAXONE SODIUM) [Concomitant]

REACTIONS (7)
  - Toxicity to various agents [None]
  - Arthralgia [None]
  - Depressed level of consciousness [None]
  - Hypoxia [None]
  - Drug level decreased [None]
  - Somnolence [None]
  - Salivary hypersecretion [None]
